FAERS Safety Report 9303048 (Version 1)
Quarter: 2013Q2

REPORT INFORMATION
  Report Type: Spontaneous
  Country: CN (occurrence: CN)
  Receive Date: 20130522
  Receipt Date: 20130522
  Transmission Date: 20140414
  Serious: Yes (Other)
  Sender: FDA-Public Use
  Company Number: CN-ROCHE-1226948

PATIENT
  Sex: Female

DRUGS (1)
  1. AVASTIN [Suspect]
     Indication: RECTAL CANCER
     Route: 041
     Dates: start: 201302

REACTIONS (5)
  - Carcinoembryonic antigen increased [Unknown]
  - Neoplasm [Unknown]
  - Suspected counterfeit product [Unknown]
  - Abdominal distension [Unknown]
  - Dyschezia [Unknown]
